FAERS Safety Report 6709801-8 (Version None)
Quarter: 2010Q2

REPORT INFORMATION
  Report Type: 
  Country: None (occurrence: None)
  Receive Date: 20100429
  Receipt Date: 20100419
  Transmission Date: 20101027
  Serious: Yes (Hospitalization)
  Sender: FDA-Public Use
  Company Number: 1000013271

PATIENT
  Age: 22 Year
  Sex: Female

DRUGS (2)
  1. CARBAMAZEPINE [Suspect]
     Indication: CONVULSION
     Dosage: 400 MG (200 MG, 2 IN 1 D); 600 MG (200 MG, 3 IN 1 D)
  2. FLUOXETINE [Concomitant]

REACTIONS (18)
  - ANTICONVULSANT DRUG LEVEL DECREASED [None]
  - ASCITES [None]
  - BLOOD TESTOSTERONE FREE INCREASED [None]
  - BLOOD TESTOSTERONE INCREASED [None]
  - BLOOD THYROID STIMULATING HORMONE INCREASED [None]
  - DEHYDROEPIANDROSTERONE DECREASED [None]
  - HAEMOGLOBIN DECREASED [None]
  - ILEUS [None]
  - LYMPHADENOPATHY [None]
  - MENOPAUSE [None]
  - OESTRADIOL INCREASED [None]
  - OVARIAN GRANULOSA-THECA CELL TUMOUR [None]
  - PALLOR [None]
  - PERITONITIS SCLEROSING [None]
  - PLEURAL EFFUSION [None]
  - SMALL INTESTINAL OBSTRUCTION [None]
  - THYROXINE FREE DECREASED [None]
  - TUMOUR HAEMORRHAGE [None]
